FAERS Safety Report 5993303-0 (Version None)
Quarter: 2008Q4

REPORT INFORMATION
  Report Type: 
  Country: None (occurrence: None)
  Receive Date: 20081212
  Receipt Date: 20081203
  Transmission Date: 20090506
  Serious: Yes (Other)
  Sender: FDA-Public Use
  Company Number: GB-NOVOPROD-277033

PATIENT
  Age: 11 Year
  Sex: Female
  Weight: 42.15 kg

DRUGS (5)
  1. NOVOMIX 30 [Suspect]
     Indication: TYPE 1 DIABETES MELLITUS
     Dosage: 19 IU, QD
     Route: 058
     Dates: start: 20080206, end: 20080509
  2. HUMULIN M3                         /00646001/ [Suspect]
     Indication: TYPE 1 DIABETES MELLITUS
     Dosage: 23 IU AM, 7 IU PM
     Dates: start: 20080509, end: 20080627
  3. HUMALOG [Suspect]
     Indication: TYPE 1 DIABETES MELLITUS
     Dosage: 30 IU, QD
     Dates: start: 20080627
  4. NOVORAPID [Concomitant]
     Dates: start: 20081001
  5. LEVEMIR [Concomitant]
     Dates: start: 20081001

REACTIONS (4)
  - EMOTIONAL DISTRESS [None]
  - INJECTION SITE ERYTHEMA [None]
  - INJECTION SITE MASS [None]
  - INJECTION SITE PAIN [None]
